FAERS Safety Report 11682535 (Version 1)
Quarter: 2015Q4

REPORT INFORMATION
  Report Type: Spontaneous
  Country: US (occurrence: None)
  Receive Date: 20151028
  Receipt Date: 20151028
  Transmission Date: 20160304
  Serious: Yes (Life-Threatening, Hospitalization)
  Sender: FDA-Public Use
  Company Number: None

PATIENT
  Age: 62 Year
  Sex: Male
  Weight: 77.1 kg

DRUGS (2)
  1. MORPHINE [Suspect]
     Active Substance: MORPHINE
     Indication: OVERDOSE
     Route: 048
     Dates: start: 20150927, end: 20151012
  2. MORPHINE [Suspect]
     Active Substance: MORPHINE
     Indication: CHRONIC KIDNEY DISEASE
     Route: 048
     Dates: start: 20150927, end: 20151012

REACTIONS (8)
  - Sedation [None]
  - Blood pressure immeasurable [None]
  - Oxygen saturation decreased [None]
  - Unresponsive to stimuli [None]
  - Overdose [None]
  - Blood glucose decreased [None]
  - Hypotension [None]
  - Respiratory depression [None]

NARRATIVE: CASE EVENT DATE: 20151011
